FAERS Safety Report 8333050-3 (Version None)
Quarter: 2012Q2

REPORT INFORMATION
  Report Type: 
  Country: None (occurrence: None)
  Receive Date: 20120503
  Receipt Date: 20120427
  Transmission Date: 20120825
  Serious: Yes (Hospitalization)
  Sender: FDA-Public Use
  Company Number: PHHO2012PL006367

PATIENT
  Sex: Male
  Weight: 68 kg

DRUGS (3)
  1. CARVEDILOL [Suspect]
  2. ALISKIREN [Suspect]
     Indication: CARDIAC FAILURE ACUTE
     Dosage: 150 MG, UNK
     Route: 048
     Dates: start: 20111123, end: 20120322
  3. PERINDOPRIL ERBUMINE [Suspect]

REACTIONS (2)
  - HYPOTONIA [None]
  - RESPIRATORY TRACT INFECTION [None]
